FAERS Safety Report 20207795 (Version 1)
Quarter: 2021Q4

REPORT INFORMATION
  Report Type: Spontaneous
  Country: FR (occurrence: FR)
  Receive Date: 20211220
  Receipt Date: 20211220
  Transmission Date: 20220304
  Serious: Yes (Congenital Anomaly)
  Sender: FDA-Public Use
  Company Number: FR-ABBOTT-03P-056-0244593-00

PATIENT
  Sex: Male

DRUGS (1)
  1. VALPROIC ACID [Suspect]
     Active Substance: VALPROIC ACID
     Indication: Maternal exposure timing unspecified
     Dosage: 250MG AM AND 1250MG PM
     Route: 064

REACTIONS (41)
  - Developmental delay [None]
  - Developmental coordination disorder [None]
  - Anger [None]
  - Echolalia [None]
  - Behaviour disorder [None]
  - Supernumerary nipple [None]
  - Hyperkeratosis [None]
  - Joint hyperextension [None]
  - Knee deformity [None]
  - Congenital flat feet [None]
  - Hand deformity [None]
  - Dysmorphism [None]
  - Educational problem [None]
  - Growth retardation [Not Recovered/Not Resolved]
  - Abnormal behaviour [None]
  - Aggression [Not Recovered/Not Resolved]
  - Scrotal disorder [None]
  - Hyporeflexia [None]
  - Foot deformity [None]
  - Myopia [None]
  - Hypoacusis [None]
  - Ear infection [None]
  - Dysmorphism [None]
  - Congenital nose malformation [None]
  - Hair growth abnormal [None]
  - Fine motor delay [None]
  - Feeling abnormal [None]
  - Cognitive disorder [None]
  - Disorientation [None]
  - Nervous system disorder [None]
  - Developmental delay [None]
  - Neurological symptom [None]
  - Disturbance in attention [None]
  - Nervous system disorder [None]
  - Cognitive disorder [None]
  - Mental impairment [None]
  - Bradyphrenia [None]
  - Disturbance in attention [None]
  - Fatigue [None]
  - Motor dysfunction [None]
  - Foetal exposure during pregnancy [None]

NARRATIVE: CASE EVENT DATE: 20030101
